FAERS Safety Report 25769330 (Version 2)
Quarter: 2025Q3

REPORT INFORMATION
  Report Type: Spontaneous
  Country: US (occurrence: US)
  Receive Date: 20250906
  Receipt Date: 20250916
  Transmission Date: 20251021
  Serious: Yes (Other)
  Sender: AMGEN
  Company Number: US-AMGEN-USASP2025176784

PATIENT

DRUGS (1)
  1. INEBILIZUMAB [Suspect]
     Active Substance: INEBILIZUMAB
     Indication: Product used for unknown indication
     Route: 065

REACTIONS (8)
  - Neuromyelitis optica spectrum disorder [Unknown]
  - Pneumonia [Unknown]
  - Central nervous system lesion [Unknown]
  - Optic nerve disorder [Unknown]
  - Gastrointestinal disorder [Unknown]
  - Headache [Unknown]
  - Urinary tract infection [Unknown]
  - Infusion related reaction [Unknown]
